FAERS Safety Report 10707261 (Version 1)
Quarter: 2015Q1

REPORT INFORMATION
  Report Type: Spontaneous
  Country: US (occurrence: None)
  Receive Date: 20150112
  Receipt Date: 20150112
  Transmission Date: 20150721
  Serious: Yes (Other)
  Sender: FDA-Public Use
  Company Number: None

PATIENT
  Age: 36 Year
  Sex: Female
  Weight: 65.77 kg

DRUGS (5)
  1. VIIBRYD [Suspect]
     Active Substance: VILAZODONE HYDROCHLORIDE
     Indication: DEPRESSION
     Dosage: 1 ONCE DAILY TAKEN BY MOUTH
     Route: 048
  2. VIIBRYD [Suspect]
     Active Substance: VILAZODONE HYDROCHLORIDE
     Indication: POST-TRAUMATIC STRESS DISORDER
     Dosage: 1 ONCE DAILY TAKEN BY MOUTH
     Route: 048
  3. VIIBRYD [Suspect]
     Active Substance: VILAZODONE HYDROCHLORIDE
     Indication: INSOMNIA
     Dosage: 1 ONCE DAILY TAKEN BY MOUTH
     Route: 048
  4. VIIBRYD [Suspect]
     Active Substance: VILAZODONE HYDROCHLORIDE
     Indication: PREMENSTRUAL DYSPHORIC DISORDER
     Dosage: 1 ONCE DAILY TAKEN BY MOUTH
     Route: 048
  5. VIIBRYD [Suspect]
     Active Substance: VILAZODONE HYDROCHLORIDE
     Indication: MOOD SWINGS
     Dosage: 1 ONCE DAILY TAKEN BY MOUTH
     Route: 048

REACTIONS (18)
  - Drug withdrawal syndrome [None]
  - Vomiting [None]
  - Panic attack [None]
  - Vomiting projectile [None]
  - Anxiety [None]
  - Dizziness [None]
  - Weight increased [None]
  - Crying [None]
  - Malaise [None]
  - Paraesthesia [None]
  - Depression [None]
  - Suicidal ideation [None]
  - Tremor [None]
  - Dependence [None]
  - Lethargy [None]
  - Headache [None]
  - Decreased appetite [None]
  - Retching [None]
